FAERS Safety Report 18929971 (Version 1)
Quarter: 2021Q1

REPORT INFORMATION
  Report Type: Spontaneous
  Country: US (occurrence: US)
  Receive Date: 20210223
  Receipt Date: 20210223
  Transmission Date: 20210420
  Serious: Yes (Death)
  Sender: FDA-Public Use
  Company Number: US-HORIZON THERAPEUTICS-HZN-2021-000521

PATIENT

DRUGS (3)
  1. RAYOS [Suspect]
     Active Substance: PREDNISONE
     Indication: CROHN^S DISEASE
     Dosage: 20 MG
     Route: 065
  2. INFLIXIMAB [Concomitant]
     Active Substance: INFLIXIMAB
     Indication: CROHN^S DISEASE
  3. INFLIXIMAB [Concomitant]
     Active Substance: INFLIXIMAB
     Indication: PAPULE
     Dosage: 2 DOSES
     Route: 065

REACTIONS (1)
  - Kaposi^s sarcoma [Fatal]
